FAERS Safety Report 8219633-X (Version None)
Quarter: 2012Q1

REPORT INFORMATION
  Report Type: 
  Country: None (occurrence: None)
  Receive Date: 20120319
  Receipt Date: 20120309
  Transmission Date: 20120608
  Serious: Yes (Hospitalization)
  Sender: FDA-Public Use
  Company Number: FI-ABBOTT-12P-055-0913175-00

PATIENT
  Sex: Male

DRUGS (3)
  1. NALTREXONE HYDROCHLORIDE [Concomitant]
     Indication: PSORIATIC ARTHROPATHY
     Dosage: 15-20 PER WEEK
     Route: 048
     Dates: start: 20100501, end: 20111109
  2. FOLIC ACID [Concomitant]
     Indication: PSORIATIC ARTHROPATHY
     Route: 048
     Dates: start: 20100501, end: 20111109
  3. HUMIRA [Suspect]
     Indication: PSORIATIC ARTHROPATHY
     Route: 058
     Dates: start: 20110929, end: 20111109

REACTIONS (7)
  - C-REACTIVE PROTEIN INCREASED [None]
  - PLEURISY [None]
  - MALIGNANT NEOPLASM OF PLEURA [None]
  - ARTHROPATHY [None]
  - RASH [None]
  - PERICARDITIS [None]
  - PYREXIA [None]
